FAERS Safety Report 18208230 (Version 2)
Quarter: 2020Q4

REPORT INFORMATION
  Report Type: Report from Study
  Country: US (occurrence: US)
  Receive Date: 20200828
  Receipt Date: 20201113
  Transmission Date: 20210113
  Serious: Yes (Hospitalization, Other)
  Sender: FDA-Public Use
  Company Number: US-BRISTOL-MYERS SQUIBB COMPANY-BMS-2020-069376

PATIENT
  Sex: Female
  Weight: 89.36 kg

DRUGS (2)
  1. DASATINIB. [Suspect]
     Active Substance: DASATINIB
     Indication: CHRONIC MYELOID LEUKAEMIA
     Dosage: 400 MILLIGRAM, DAILY
     Route: 048
     Dates: start: 2014
  2. DASATINIB. [Suspect]
     Active Substance: DASATINIB
     Dosage: 20 MILLIGRAM, QD
     Route: 048
     Dates: start: 20150815

REACTIONS (16)
  - Reflux laryngitis [Unknown]
  - Rash [Unknown]
  - Chest discomfort [Unknown]
  - Neuropathy peripheral [Unknown]
  - Dizziness [Unknown]
  - Pruritus [Unknown]
  - Vomiting [Unknown]
  - Eye irritation [Unknown]
  - Prescribed overdose [Unknown]
  - Pain in extremity [Unknown]
  - Skin mass [Unknown]
  - Headache [Unknown]
  - Eye disorder [Unknown]
  - Fatigue [Unknown]
  - Dyspnoea exertional [Unknown]
  - Peripheral swelling [Unknown]
